FAERS Safety Report 18590670 (Version 2)
Quarter: 2020Q4

REPORT INFORMATION
  Report Type: Spontaneous
  Country: CA (occurrence: CA)
  Receive Date: 20201208
  Receipt Date: 20201211
  Transmission Date: 20210114
  Serious: Yes (Hospitalization, Other)
  Sender: FDA-Public Use
  Company Number: CA-ABBVIE-20K-028-3679601-00

PATIENT
  Sex: Male

DRUGS (2)
  1. HUMIRA [Suspect]
     Active Substance: ADALIMUMAB
     Indication: PRODUCT USED FOR UNKNOWN INDICATION
     Route: 058
  2. HUMIRA [Suspect]
     Active Substance: ADALIMUMAB
     Route: 058

REACTIONS (15)
  - Colitis [Unknown]
  - Abdominal tenderness [Unknown]
  - Pain [Unknown]
  - Gastrointestinal disorder [Unknown]
  - Vomiting [Unknown]
  - Abdominal pain lower [Unknown]
  - Intra-abdominal fluid collection [Unknown]
  - Diverticulum intestinal [Unknown]
  - Gastrointestinal wall thickening [Unknown]
  - Condition aggravated [Unknown]
  - Rectal perforation [Unknown]
  - Haematochezia [Unknown]
  - Flatulence [Unknown]
  - Heart rate abnormal [Unknown]
  - Vein disorder [Unknown]

NARRATIVE: CASE EVENT DATE: 202009
